FAERS Safety Report 10422718 (Version 1)
Quarter: 2014Q3

REPORT INFORMATION
  Report Type: Spontaneous
  Country: US (occurrence: US)
  Receive Date: 20140902
  Receipt Date: 20140902
  Transmission Date: 20150326
  Serious: Yes (Hospitalization)
  Sender: FDA-Public Use
  Company Number: US-AUROBINDO-AUR-APL-2014-09146

PATIENT
  Age: 67 Year
  Sex: Male

DRUGS (3)
  1. TRAMADOL [Suspect]
     Active Substance: TRAMADOL
     Indication: ANALGESIC THERAPY
     Dosage: 100 MG, 3 TIMES A DAY
     Route: 048
  2. RASAGILINE [Interacting]
     Active Substance: RASAGILINE
     Indication: PRODUCT USED FOR UNKNOWN INDICATION
     Dosage: 1 MG, DAILY
     Route: 065
  3. ZIPRASIDONE [Interacting]
     Active Substance: ZIPRASIDONE
     Indication: HALLUCINATION
     Dosage: 20 MG, DAILY
     Route: 048

REACTIONS (24)
  - Renal failure acute [Unknown]
  - Serotonin syndrome [Unknown]
  - Blood creatine phosphokinase increased [Unknown]
  - Chills [Unknown]
  - Hyperhidrosis [Unknown]
  - Disorientation [Unknown]
  - Drug interaction [Unknown]
  - Rhabdomyolysis [Unknown]
  - Arthralgia [Unknown]
  - Cold sweat [Unknown]
  - Fall [Unknown]
  - Resting tremor [Unknown]
  - Myoglobin urine present [Unknown]
  - Dyskinesia [Unknown]
  - Myoclonus [Unknown]
  - Hyperreflexia [Unknown]
  - Tachycardia [Unknown]
  - Back pain [Unknown]
  - Gait disturbance [Unknown]
  - Neutrophilia [Unknown]
  - Hallucination [Unknown]
  - Agitation [Unknown]
  - Tachypnoea [Unknown]
  - Gastrointestinal sounds abnormal [Unknown]
